FAERS Safety Report 18900862 (Version 3)
Quarter: 2021Q1

REPORT INFORMATION
  Report Type: Report from Study
  Country: None (occurrence: TR)
  Receive Date: 20210217
  Receipt Date: 20210318
  Transmission Date: 20210420
  Serious: Yes (Hospitalization)
  Sender: FDA-Public Use
  Company Number: TR-ABBVIE-21K-161-3776069-00

PATIENT
  Age: 68 Year
  Sex: Female
  Weight: 48 kg

DRUGS (8)
  1. GLIFOR [Concomitant]
     Active Substance: METFORMIN HYDROCHLORIDE
     Indication: DIABETES MELLITUS
     Dosage: 2X1/2
     Route: 048
     Dates: start: 20171009
  2. DUODOPA [Suspect]
     Active Substance: CARBIDOPA\LEVODOPA
     Dosage: MORNING DOSE (ML): 6.40 CONTINIOUS DOSE (ML): 3.60 EXTRA DOSE (ML): 0.50.
     Route: 050
     Dates: start: 20210218
  3. DUODOPA [Suspect]
     Active Substance: CARBIDOPA\LEVODOPA
     Indication: PARKINSON^S DISEASE
     Dosage: MORNING DOSE (ML): 6.40 CONTINIOUS DOSE (ML): 3.60 EXTRA DOSE (ML): 0.50
     Route: 050
     Dates: start: 20171009, end: 20210210
  4. LUSTRAL [Concomitant]
     Active Substance: SERTRALINE HYDROCHLORIDE
     Indication: PARKINSON^S DISEASE
     Route: 048
  5. COVID?19 VACCINE [Concomitant]
     Indication: COVID-19 IMMUNISATION
     Route: 030
     Dates: start: 20210125, end: 20210125
  6. LYRICA [Concomitant]
     Active Substance: PREGABALIN
     Indication: PARKINSON^S DISEASE
     Route: 048
     Dates: start: 2010
  7. NEXIUM [Concomitant]
     Active Substance: ESOMEPRAZOLE MAGNESIUM
     Indication: PROPHYLAXIS
     Route: 048
  8. MOTILIUM [Concomitant]
     Active Substance: DOMPERIDONE
     Indication: PARKINSON^S DISEASE
     Route: 048

REACTIONS (4)
  - General physical health deterioration [Recovering/Resolving]
  - Fluid intake reduced [Recovered/Resolved]
  - Device occlusion [Recovered/Resolved]
  - Malnutrition [Recovered/Resolved]

NARRATIVE: CASE EVENT DATE: 20210201
